FAERS Safety Report 6087858-8 (Version None)
Quarter: 2009Q1

REPORT INFORMATION
  Report Type: 
  Country: None (occurrence: None)
  Receive Date: 20090219
  Receipt Date: 20090219
  Transmission Date: 20090719
  Serious: Yes (Other)
  Sender: FDA-Public Use
  Company Number: None

PATIENT
  Age: 71 Year
  Sex: Female
  Weight: 66.2252 kg

DRUGS (2)
  1. MOVIPREP [Suspect]
     Indication: COLONOSCOPY
     Dosage: 2X1 QT 2QT OVER 8 HRS ORAL
     Route: 048
     Dates: start: 20090202
  2. MOVIPREP [Suspect]
     Indication: COLONOSCOPY
     Dosage: 2X1 QT 2QT OVER 8 HRS ORAL
     Route: 048
     Dates: start: 20090203

REACTIONS (4)
  - EYE SWELLING [None]
  - FEELING HOT [None]
  - INFLAMMATION [None]
  - SWELLING FACE [None]
